FAERS Safety Report 4392684-1 (Version None)
Quarter: 2004Q3

REPORT INFORMATION
  Report Type: 
  Country: None (occurrence: None)
  Receive Date: 20040701
  Receipt Date: 20040622
  Transmission Date: 20050211
  Serious: Yes (Hospitalization)
  Sender: FDA-Public Use
  Company Number: 2004220403US

PATIENT
  Age: 68 Year
  Sex: Female

DRUGS (1)
  1. CELEBREX [Suspect]
     Indication: ARTHRITIS
     Dosage: 200 MG, BID, ORAL
     Route: 048
     Dates: end: 20040501

REACTIONS (3)
  - HIP ARTHROPLASTY [None]
  - KNEE ARTHROPLASTY [None]
  - PULMONARY HYPERTENSION [None]
